FAERS Safety Report 5926548-6 (Version None)
Quarter: 2008Q4

REPORT INFORMATION
  Report Type: 
  Country: None (occurrence: None)
  Receive Date: 20081022
  Receipt Date: 20081013
  Transmission Date: 20090506
  Serious: Yes (Disabling)
  Sender: FDA-Public Use
  Company Number: US-ELI_LILLY_AND_COMPANY-US200810003316

PATIENT
  Sex: Male
  Weight: 59 kg

DRUGS (1)
  1. CYMBALTA [Suspect]
     Dosage: 30 MG, DAILY (1/D)
     Route: 048
     Dates: start: 20080804, end: 20080807

REACTIONS (4)
  - AFFECT LABILITY [None]
  - AGITATION [None]
  - DEPRESSION SUICIDAL [None]
  - EUPHORIC MOOD [None]
